FAERS Safety Report 5581761-5 (Version None)
Quarter: 2008Q1

REPORT INFORMATION
  Report Type: 
  Country: None (occurrence: None)
  Receive Date: 20080104
  Receipt Date: 20071221
  Transmission Date: 20080703
  Serious: Yes (Death, Other)
  Sender: FDA-Public Use
  Company Number: FR-MERCK-0604FRA00003B2

PATIENT
  Age: 0 Day

DRUGS (1)
  1. COZAAR [Suspect]
     Indication: HYPERTENSION
     Route: 064

REACTIONS (3)
  - ANURIA [None]
  - HYPOTENSION [None]
  - RESPIRATORY FAILURE [None]
